FAERS Safety Report 11889902 (Version 1)
Quarter: 2016Q1

REPORT INFORMATION
  Report Type: Spontaneous
  Country: US (occurrence: US)
  Receive Date: 20160105
  Receipt Date: 20160105
  Transmission Date: 20160526
  Serious: No
  Sender: FDA-Public Use
  Company Number: US-PERRIGO-15US003325

PATIENT
  Age: 52 Year
  Sex: Male
  Weight: 82.54 kg

DRUGS (2)
  1. GUAIFENESIN 600 MG 498 [Suspect]
     Active Substance: GUAIFENESIN
     Indication: RESPIRATORY TRACT CONGESTION
     Dosage: 600 MG, SINGLE
     Route: 048
     Dates: start: 20150321, end: 20150321
  2. COLD MULTI SYMPTOM DAYTIME [Concomitant]
     Indication: NASOPHARYNGITIS
     Dosage: UNKNOWN, UNKNOWN
     Route: 048
     Dates: start: 20150321, end: 20150322

REACTIONS (1)
  - Drug ineffective [Unknown]

NARRATIVE: CASE EVENT DATE: 20150321
